FAERS Safety Report 7496163-4 (Version None)
Quarter: 2011Q2

REPORT INFORMATION
  Report Type: 
  Country: None (occurrence: None)
  Receive Date: 20110523
  Receipt Date: 20110510
  Transmission Date: 20111010
  Serious: Yes (Other)
  Sender: FDA-Public Use
  Company Number: PHHY2010US32565

PATIENT
  Sex: Female

DRUGS (2)
  1. BENICAR HCT [Concomitant]
     Indication: HYPERTENSION
     Dosage: 2/125 UNK, QD
     Route: 048
     Dates: start: 20090921
  2. RECLAST [Suspect]
     Indication: OSTEOPOROSIS POSTMENOPAUSAL
     Dosage: UNK
     Route: 042
     Dates: start: 20100519, end: 20100519

REACTIONS (16)
  - HEADACHE [None]
  - DIZZINESS [None]
  - FATIGUE [None]
  - MALAISE [None]
  - PYREXIA [None]
  - BLOOD PRESSURE INCREASED [None]
  - BLOOD PRESSURE FLUCTUATION [None]
  - HEART RATE INCREASED [None]
  - HYPERHIDROSIS [None]
  - ASTHENIA [None]
  - DYSPNOEA [None]
  - CHILLS [None]
  - GAIT DISTURBANCE [None]
  - ARTHRALGIA [None]
  - MYALGIA [None]
  - PAIN IN EXTREMITY [None]
